FAERS Safety Report 9478200 (Version 1)
Quarter: 2013Q3

REPORT INFORMATION
  Report Type: Spontaneous
  Country: DE (occurrence: None)
  Receive Date: 20130815
  Receipt Date: 20130815
  Transmission Date: 20140515
  Serious: Yes (Other)
  Sender: FDA-Public Use
  Company Number: 2013037287

PATIENT
  Age: 67 Year
  Sex: Male

DRUGS (10)
  1. PRIVIGEN (IMMUNE GLOBULIN INTRAVENOUS (HUMAN) 10% LIQUID) [Suspect]
     Indication: PLASMA CELL MYELOMA
     Dosage: 10 G QD
     Dates: start: 20130314, end: 20130314
  2. PRIVIGEN (IMMUNE GLOBULIN INTRAVENOUS (HUMAN) 10% LIQUID) [Suspect]
     Indication: PLASMACYTOMA
     Dosage: 10 G QD
     Dates: start: 20130314, end: 20130314
  3. PANTOZOL [Concomitant]
  4. BENALAPRIL [Concomitant]
  5. METOPROLOL [Concomitant]
  6. TOREM /01036501/ (TORASEMIDE) [Concomitant]
  7. ALL OTHER THERAPEUTIC PRODUCTS [Concomitant]
  8. LYRICA [Concomitant]
  9. ASS [Concomitant]
  10. PALLADON [Concomitant]

REACTIONS (4)
  - Condition aggravated [None]
  - General physical health deterioration [None]
  - Plasma cell myeloma [None]
  - Infection [None]
